FAERS Safety Report 23585832 (Version 2)
Quarter: 2024Q1

REPORT INFORMATION
  Report Type: Spontaneous
  Country: AU (occurrence: AU)
  Receive Date: 20240301
  Receipt Date: 20240301
  Transmission Date: 20240410
  Serious: Yes (Hospitalization, Other)
  Sender: FDA-Public Use
  Company Number: AU-PFIZER INC-PV202400026764

PATIENT
  Age: 34 Year
  Sex: Male

DRUGS (6)
  1. CLOZAPINE [Suspect]
     Active Substance: CLOZAPINE
     Indication: Schizophrenia
     Dosage: UNK
  2. VORICONAZOLE [Interacting]
     Active Substance: VORICONAZOLE
     Dosage: 6 MG/KG 12-HOURLY FOR TWO DOSES
     Route: 048
  3. VORICONAZOLE [Interacting]
     Active Substance: VORICONAZOLE
     Dosage: 4 MG/KG 12-HOURLY THEREAFTER
     Route: 048
  4. PALIPERIDONE [Interacting]
     Active Substance: PALIPERIDONE
     Indication: Schizophrenia
     Dosage: 3 MG, DAILY
  5. PALIPERIDONE [Interacting]
     Active Substance: PALIPERIDONE
     Dosage: 9 MG, DAILY
  6. PALIPERIDONE [Interacting]
     Active Substance: PALIPERIDONE
     Dosage: 6 MG, DAILY

REACTIONS (11)
  - Febrile neutropenia [Recovering/Resolving]
  - Extrapyramidal disorder [Recovered/Resolved]
  - Antipsychotic drug level increased [Recovering/Resolving]
  - Liver function test abnormal [Recovered/Resolved]
  - Drug interaction [Recovering/Resolving]
  - Pyrexia [Recovering/Resolving]
  - Fungal infection [Recovering/Resolving]
  - Hypertonia [Recovering/Resolving]
  - Hyperreflexia [Recovering/Resolving]
  - Blood creatine phosphokinase increased [Recovering/Resolving]
  - Agitation [Recovering/Resolving]
